FAERS Safety Report 10930380 (Version 1)
Quarter: 2015Q1

REPORT INFORMATION
  Report Type: Spontaneous
  Country: US (occurrence: None)
  Receive Date: 20150318
  Receipt Date: 20150318
  Transmission Date: 20150721
  Serious: Yes (Hospitalization)
  Sender: FDA-Public Use
  Company Number: None

PATIENT
  Age: 62 Year
  Sex: Female

DRUGS (1)
  1. HARVONI [Suspect]
     Active Substance: LEDIPASVIR\SOFOSBUVIR
     Indication: CHRONIC HEPATITIS C
     Route: 048
     Dates: start: 20141229

REACTIONS (9)
  - Crepitations [None]
  - Mental status changes [None]
  - Fall [None]
  - Cardiac failure congestive [None]
  - Electrocardiogram QT prolonged [None]
  - Hypokalaemia [None]
  - Hepatic encephalopathy [None]
  - Infrequent bowel movements [None]
  - Chronic obstructive pulmonary disease [None]

NARRATIVE: CASE EVENT DATE: 20150228
